FAERS Safety Report 4279648-3 (Version None)
Quarter: 2004Q1

REPORT INFORMATION
  Report Type: 
  Country: None (occurrence: None)
  Receive Date: 20040123
  Receipt Date: 20040115
  Transmission Date: 20041129
  Serious: No
  Sender: FDA-Public Use
  Company Number: 2003190212GB

PATIENT
  Age: 15 Year
  Sex: Female

DRUGS (1)
  1. GENOTROPIN [Suspect]

REACTIONS (1)
  - BRAIN STEM HAEMORRHAGE [None]
